FAERS Safety Report 10513365 (Version 2)
Quarter: 2014Q4

REPORT INFORMATION
  Report Type: Spontaneous
  Country: None (occurrence: US)
  Receive Date: 20141013
  Receipt Date: 20141130
  Transmission Date: 20150528
  Serious: No
  Sender: FDA-Public Use
  Company Number: US-TEVA-513410USA

PATIENT
  Sex: Female

DRUGS (4)
  1. ZYFLO [Concomitant]
     Active Substance: ZILEUTON
  2. PROAIR HFA [Suspect]
     Active Substance: ALBUTEROL SULFATE
  3. ADVAIR HFA [Concomitant]
     Active Substance: FLUTICASONE PROPIONATE\SALMETEROL XINAFOATE
  4. ADVAIR HFA [Concomitant]
     Active Substance: FLUTICASONE PROPIONATE\SALMETEROL XINAFOATE

REACTIONS (2)
  - Dysgeusia [Unknown]
  - Product taste abnormal [Unknown]
